FAERS Safety Report 5237585-1 (Version None)
Quarter: 2007Q1

REPORT INFORMATION
  Report Type: 
  Country: None (occurrence: None)
  Receive Date: 20070213
  Receipt Date: 20070202
  Transmission Date: 20070707
  Serious: Yes (Other)
  Sender: FDA-Public Use
  Company Number: US-PFIZER INC-2007009448

PATIENT

DRUGS (1)
  1. CHANTIX [Suspect]

REACTIONS (4)
  - AMNESIA [None]
  - ANXIETY [None]
  - COGNITIVE DISORDER [None]
  - DRUG WITHDRAWAL SYNDROME [None]
